FAERS Safety Report 7384778-3 (Version None)
Quarter: 2011Q1

REPORT INFORMATION
  Report Type: 
  Country: None (occurrence: None)
  Receive Date: 20110330
  Receipt Date: 20110323
  Transmission Date: 20110831
  Serious: Yes (Other)
  Sender: FDA-Public Use
  Company Number: US-B.I. PHARMACEUTICALS,INC./RIDGEFIELD-2011-BP-08957BP

PATIENT
  Sex: Male

DRUGS (7)
  1. PRADAXA [Suspect]
     Indication: ATRIAL FIBRILLATION
  2. LIPITOR [Concomitant]
     Indication: BLOOD CHOLESTEROL INCREASED
  3. MULTIVITAMIN [Concomitant]
  4. PRADAXA [Suspect]
     Indication: CEREBROVASCULAR ACCIDENT PROPHYLAXIS
     Dosage: 300 MG
     Route: 048
     Dates: start: 20101101
  5. FLOMAX [Concomitant]
     Indication: BENIGN PROSTATIC HYPERPLASIA
  6. NEURONTIN [Concomitant]
     Indication: BACK DISORDER
  7. TOPROL-XL [Concomitant]
     Indication: ATRIAL FIBRILLATION

REACTIONS (2)
  - BACK DISORDER [None]
  - PROSTATE CANCER [None]
